FAERS Safety Report 10366351 (Version 1)
Quarter: 2014Q3

REPORT INFORMATION
  Report Type: Spontaneous
  Country: TW (occurrence: TW)
  Receive Date: 20140806
  Receipt Date: 20140806
  Transmission Date: 20150326
  Serious: Yes (Other)
  Sender: FDA-Public Use
  Company Number: TW-US-EMD SERONO, INC.-7312244

PATIENT
  Sex: Female

DRUGS (1)
  1. GONAL-F [Suspect]
     Active Substance: FOLLITROPIN
     Indication: INFERTILITY

REACTIONS (1)
  - Haemorrhage [Not Recovered/Not Resolved]
